FAERS Safety Report 16005061 (Version 1)
Quarter: 2019Q1

REPORT INFORMATION
  Report Type: Spontaneous
  Country: US (occurrence: US)
  Receive Date: 20190226
  Receipt Date: 20190226
  Transmission Date: 20190418
  Serious: Yes (Life-Threatening, Hospitalization, Disabling, Other)
  Sender: FDA-Public Use
  Company Number: US-HIKMA PHARMACEUTICALS USA INC.-US-H14001-19-01143

PATIENT
  Age: 48 Year
  Sex: Female

DRUGS (1)
  1. HEPARIN [Suspect]
     Active Substance: HEPARIN SODIUM
     Indication: DEEP VEIN THROMBOSIS
     Dosage: STARTED ON THERAPEUTIC (FULL-DOSE) DOSE OF UF TITRATED TO ANTI-XA ACTIVITY ()
     Route: 065

REACTIONS (7)
  - Peripheral artery thrombosis [Unknown]
  - Necrosis [Recovered/Resolved]
  - Gangrene [Recovered/Resolved with Sequelae]
  - Peripheral ischaemia [Unknown]
  - Heparin-induced thrombocytopenia [Recovered/Resolved]
  - Cardiogenic shock [Unknown]
  - Thrombosis [Recovered/Resolved]
